FAERS Safety Report 16106713 (Version 1)
Quarter: 2019Q1

REPORT INFORMATION
  Report Type: Spontaneous
  Country: TR (occurrence: TR)
  Receive Date: 20190322
  Receipt Date: 20190322
  Transmission Date: 20190418
  Serious: Yes (Hospitalization)
  Sender: FDA-Public Use
  Company Number: TR-ASTRAZENECA-2019SE43381

PATIENT
  Age: 54 Year
  Sex: Female

DRUGS (2)
  1. FORXIGA [Suspect]
     Active Substance: DAPAGLIFLOZIN
     Route: 048
     Dates: start: 20190307, end: 20190314
  2. JANUVIA-MET [Concomitant]

REACTIONS (2)
  - Gangrene [Not Recovered/Not Resolved]
  - Therapy cessation [Unknown]
